FAERS Safety Report 15627985 (Version 1)
Quarter: 2018Q4

REPORT INFORMATION
  Report Type: Spontaneous
  Country: TR (occurrence: TR)
  Receive Date: 20181116
  Receipt Date: 20181116
  Transmission Date: 20190205
  Serious: Yes (Other)
  Sender: FDA-Public Use
  Company Number: TR-MYLANLABS-2018M1085856

PATIENT
  Age: 45 Year
  Sex: Female

DRUGS (10)
  1. CYCLOPHOSPHAMIDE. [Suspect]
     Active Substance: CYCLOPHOSPHAMIDE
     Indication: CHORIOCARCINOMA
     Dosage: AS A PART OF 8 CYCLES OF FIRST-LINE EMA-CO REGIMEN
     Route: 065
  2. PACLITAXEL. [Suspect]
     Active Substance: PACLITAXEL
     Indication: CHORIOCARCINOMA
     Dosage: AS A PART OF 4 CYCLES OF SECOND-LINE CHEMOTHERAPY AND 2 CYCLES OF FOURTH-LINE TIP REGIMEN
     Route: 065
  3. METHOTREXATE. [Suspect]
     Active Substance: METHOTREXATE
     Indication: CHORIOCARCINOMA
     Dosage: AS A PART OF 8 CYCLES OF FIRST-LINE EMA-CO REGIMEN
     Route: 065
  4. ACTINOMYCIN D [Suspect]
     Active Substance: DACTINOMYCIN
     Indication: CHORIOCARCINOMA
     Dosage: AS A PART OF 8 CYCLES OF FIRST-LINE EMA-CO REGIMEN
     Route: 065
  5. BLEOMYCIN [Suspect]
     Active Substance: BLEOMYCIN SULFATE
     Indication: CHORIOCARCINOMA
     Dosage: AS A PART OF 3 CYCLES OF THIRD-LINE BEP REGIMEN
     Route: 065
  6. ETOPOSIDE. [Suspect]
     Active Substance: ETOPOSIDE
     Indication: CHORIOCARCINOMA
     Dosage: GIVEN AS A PART OF 8 CYCLES OF FIRST LINE EMA-CO REGIMEN, THIRD-LINE BEP REGIMEN AND LATER AS HIG...
     Route: 065
  7. CISPLATIN. [Suspect]
     Active Substance: CISPLATIN
     Indication: CHORIOCARCINOMA
     Dosage: AS A PART OF 3 CYCLES OF THIRD-LINE BEP REGIMEN FOLLOWED BY THREE CYCLES OF ETOPOSIDE AND CISPLAT...
     Route: 065
  8. IFOSFAMIDE. [Suspect]
     Active Substance: IFOSFAMIDE
     Indication: CHORIOCARCINOMA
     Dosage: AS A PART OF 2 CYCLES OF FOURTH-LINE TIP REGIMEN
     Route: 065
  9. VINCRISTINE [Suspect]
     Active Substance: VINCRISTINE
     Indication: CHORIOCARCINOMA
     Dosage: AS A PART OF 8 CYCLES OF FIRST-LINE EMA-CO REGIMEN
     Route: 065
  10. CARBOPLATIN. [Suspect]
     Active Substance: CARBOPLATIN
     Indication: CHORIOCARCINOMA
     Dosage: AS A PART OF 4 CYCLES OF SECOND-LINE CHEMOTHERAPY; LATER AS A PART OF HIGH DOSE CHEMOTHERAPY AT A...
     Route: 065

REACTIONS (1)
  - Drug ineffective [Unknown]
